FAERS Safety Report 8426120-2 (Version None)
Quarter: 2012Q2

REPORT INFORMATION
  Report Type: 
  Country: None (occurrence: None)
  Receive Date: 20120611
  Receipt Date: 20120607
  Transmission Date: 20120825
  Serious: Yes (Death)
  Sender: FDA-Public Use
  Company Number: BE-BAYER-2011-037961

PATIENT
  Age: 57 Year
  Sex: Male
  Weight: 73.9 kg

DRUGS (20)
  1. PLACEBO [Suspect]
     Indication: HEPATIC NEOPLASM MALIGNANT
     Dosage: 150 MG, OD
     Route: 048
     Dates: start: 20091013, end: 20100829
  2. PLACEBO [Suspect]
     Dosage: 100 MG, OD
     Route: 048
     Dates: start: 20101019, end: 20110503
  3. LANTUS [Concomitant]
     Indication: DIABETES MELLITUS
     Dosage: 34 U, UNK
     Dates: start: 20040101, end: 20100204
  4. VISIPAQUE [Concomitant]
     Indication: SCAN WITH CONTRAST
     Dosage: 10 ML, UNK
     Dates: start: 20100105, end: 20110412
  5. IOMERON-150 [Concomitant]
     Indication: SCAN WITH CONTRAST
     Dosage: 10 ML, UNK
     Dates: start: 20100216, end: 20100330
  6. XENETIX [Concomitant]
     Indication: SCAN WITH CONTRAST
     Dosage: 10 ML, UNK
     Dates: start: 20110118, end: 20110118
  7. LANTUS [Concomitant]
     Dosage: MAX 25 U
     Dates: start: 20100205
  8. TELEBRIX [Concomitant]
     Indication: SCAN WITH CONTRAST
     Dosage: 50 ML, UNK
     Dates: start: 20090915, end: 20110412
  9. SORAFENIB (RAF KINASE INHIBITOR) [Suspect]
     Dosage: 400 MG, OD
     Route: 048
     Dates: start: 20110503, end: 20110503
  10. URSO FALK [Concomitant]
     Indication: PROPHYLAXIS
     Dosage: 500 MG, UNK
     Dates: start: 20101026, end: 20110207
  11. SALINA [Concomitant]
     Indication: SCAN WITH CONTRAST
     Dosage: 10 ML, UNK
     Dates: start: 20100216, end: 20100412
  12. PLACEBO [Suspect]
     Dosage: 100 MG, QD
     Route: 048
     Dates: start: 20100915, end: 20101017
  13. SORAFENIB (RAF KINASE INHIBITOR) [Suspect]
     Dosage: 400 MG, BID
     Route: 048
     Dates: start: 20101019, end: 20110502
  14. NOVOMIX [INSULIN ASPART] [Concomitant]
     Indication: DIABETES MELLITUS
     Dosage: 48 U, UNK
     Dates: start: 20040101, end: 20100204
  15. SORAFENIB (RAF KINASE INHIBITOR) [Suspect]
     Indication: HEPATIC NEOPLASM MALIGNANT
     Dosage: 400 MG BID
     Route: 048
     Dates: start: 20091013, end: 20100829
  16. INFLUVAC S [Concomitant]
     Indication: ANTIVIRAL PROPHYLAXIS
     Dosage: 0.5 ML
     Dates: start: 20091103, end: 20091103
  17. SORAFENIB (RAF KINASE INHIBITOR) [Suspect]
     Dosage: 400 MG, OD
     Route: 048
     Dates: start: 20101017, end: 20101018
  18. SORAFENIB (RAF KINASE INHIBITOR) [Suspect]
     Dosage: 400 MG, BID
     Route: 048
     Dates: start: 20100915, end: 20101016
  19. NOVOMIX [INSULIN ASPART] [Concomitant]
     Dosage: MAX 45 U
     Dates: start: 20100205
  20. ULTRAVIST 370 [Concomitant]
     Indication: SCAN WITH CONTRAST
     Dosage: 10 ML, UNK
     Dates: start: 20090915, end: 20101026

REACTIONS (1)
  - CARDIAC ARREST [None]
